FAERS Safety Report 8934864 (Version 2)
Quarter: 2012Q4

REPORT INFORMATION
  Report Type: 
  Country: IT (occurrence: IT)
  Receive Date: 20121129
  Receipt Date: 20121221
  Transmission Date: 20130627
  Serious: Yes (Other)
  Sender: FDA-Public Use
  Company Number: IT-B.I. PHARMACEUTICALS,INC./RIDGEFIELD-2012-IT-00363IT

PATIENT
  Age: 86 Year
  Sex: Female

DRUGS (2)
  1. MICARDIS [Suspect]
     Dosage: 40 mg
     Route: 048
     Dates: start: 20110820, end: 20120819
  2. CALCIUM CARBONATE-LACTATE GLUCONATE [Concomitant]

REACTIONS (1)
  - Presyncope [Not Recovered/Not Resolved]
